FAERS Safety Report 10172766 (Version 1)
Quarter: 2014Q2

REPORT INFORMATION
  Report Type: Spontaneous
  Country: US (occurrence: None)
  Receive Date: 20140416
  Receipt Date: 20140416
  Transmission Date: 20141212
  Serious: No
  Sender: FDA-Public Use
  Company Number: 163-POMAL-13124057

PATIENT
  Age: 77 Year
  Sex: Male

DRUGS (10)
  1. POMALYST [Suspect]
     Indication: PLASMA CELL MYELOMA
     Dosage: 2 MG, 21 IN 21 D, PO
     Route: 048
     Dates: start: 20130809
  2. NITROQUICK (GLYCERYL TRINITRATE) [Concomitant]
  3. BENADRYL (DIPHENHYDRAMINE) [Concomitant]
  4. PRILOSEC (OMEPRAZOLE) [Concomitant]
  5. METOPROLOL TARTRATE (METOPROLOL TARTRATE) [Concomitant]
  6. LISINOPRIL (LISINOPRIL) [Concomitant]
  7. ASPIRIN ADULT LOW STRENGTH (ACETYLSALICYLIC ACID) [Concomitant]
  8. ACYCLOVIR (ACICLOVIR) (ACICLOVIR) [Concomitant]
  9. CRESTOR (ROSUVASTATIN) [Concomitant]
  10. LIPITOR (ATORVASTATIN) [Concomitant]

REACTIONS (2)
  - Contusion [None]
  - Peripheral swelling [None]
